FAERS Safety Report 14477379 (Version 1)
Quarter: 2018Q1

REPORT INFORMATION
  Report Type: Report from Study
  Country: US (occurrence: US)
  Receive Date: 20180201
  Receipt Date: 20180201
  Transmission Date: 20180509
  Serious: No
  Sender: FDA-Public Use
  Company Number: US-EXELIXIS-CABO-17010467

PATIENT
  Sex: Male

DRUGS (12)
  1. CABOMETYX [Suspect]
     Active Substance: CABOZANTINIB S-MALATE
     Indication: RENAL CANCER
     Dosage: 40 MG, QD
     Route: 048
  2. ZOFRAN [Concomitant]
     Active Substance: ONDANSETRON HYDROCHLORIDE
  3. PROCHLORPERAZINE. [Concomitant]
     Active Substance: PROCHLORPERAZINE
  4. DIPHENHYDRAMINE. [Concomitant]
     Active Substance: DIPHENHYDRAMINE
  5. RANITIDINE. [Concomitant]
     Active Substance: RANITIDINE
  6. ZOMETA [Concomitant]
     Active Substance: ZOLEDRONIC ACID
  7. CABOMETYX [Suspect]
     Active Substance: CABOZANTINIB S-MALATE
     Indication: BONE CANCER
     Dosage: 40 MG, QOD
     Route: 048
  8. MEGESTROL ACETATE. [Concomitant]
     Active Substance: MEGESTROL ACETATE
  9. DILAUDID [Concomitant]
     Active Substance: HYDROMORPHONE HYDROCHLORIDE
  10. PREDNISONE. [Concomitant]
     Active Substance: PREDNISONE
  11. FENTANYL. [Concomitant]
     Active Substance: FENTANYL
  12. COLACE [Concomitant]
     Active Substance: DOCUSATE SODIUM

REACTIONS (2)
  - Rash [Unknown]
  - Blister [Unknown]
